FAERS Safety Report 5039138-7 (Version None)
Quarter: 2006Q2

REPORT INFORMATION
  Report Type: 
  Country: None (occurrence: None)
  Receive Date: 20060629
  Receipt Date: 20060627
  Transmission Date: 20061013
  Serious: Yes (Hospitalization)
  Sender: FDA-Public Use
  Company Number: US-GLAXOSMITHKLINE-A0610505A

PATIENT
  Age: 58 Year
  Sex: Female

DRUGS (3)
  1. AVANDIA [Suspect]
     Route: 048
     Dates: start: 20040101, end: 20050101
  2. PRAVACHOL [Concomitant]
  3. ZETIA [Concomitant]

REACTIONS (3)
  - OEDEMA [None]
  - PALPITATIONS [None]
  - WEIGHT INCREASED [None]
